FAERS Safety Report 11578873 (Version 2)
Quarter: 2015Q4

REPORT INFORMATION
  Report Type: Spontaneous
  Country: US (occurrence: US)
  Receive Date: 20150930
  Receipt Date: 20151125
  Transmission Date: 20160304
  Serious: Yes (Other)
  Sender: FDA-Public Use
  Company Number: US-ASTRAZENECA-2015SE90900

PATIENT
  Age: 19841 Day
  Sex: Female
  Weight: 181.4 kg

DRUGS (30)
  1. BYETTA [Suspect]
     Active Substance: EXENATIDE
     Indication: DIABETES MELLITUS
     Dosage: 5 UG/0.02 ML; TWO TIMES A DAY
     Route: 058
     Dates: start: 20101129, end: 20150928
  2. POTASSIUM [Concomitant]
     Active Substance: POTASSIUM
     Route: 048
  3. FUROSEMIDE. [Concomitant]
     Active Substance: FUROSEMIDE
     Route: 048
     Dates: start: 20150928
  4. FUROSEMIDE. [Concomitant]
     Active Substance: FUROSEMIDE
     Route: 048
     Dates: start: 20151129
  5. TOPIRAMATE. [Concomitant]
     Active Substance: TOPIRAMATE
     Route: 048
     Dates: start: 20130911
  6. MOEXIPRIL-HYDROCHLOROTHIAZIDE [Concomitant]
     Dosage: 15-25 MG 1 DAILY
     Route: 048
     Dates: start: 20101129
  7. WATER PILL [Concomitant]
     Active Substance: UNSPECIFIED INGREDIENT
  8. SYNTHROID [Concomitant]
     Active Substance: LEVOTHYROXINE SODIUM
     Route: 048
     Dates: start: 20101129
  9. VICTOZA [Concomitant]
     Active Substance: LIRAGLUTIDE
     Dosage: 18 MG/3 ML SPON, 1.2 MG ; EVERY MORNING
     Route: 058
     Dates: start: 20101129
  10. BYETTA [Suspect]
     Active Substance: EXENATIDE
     Indication: DIABETES MELLITUS
     Dosage: 250 MCG / 1.2 ML PEN; 5 UG TWO TIMES A DAY
     Route: 058
     Dates: start: 20150803, end: 20150818
  11. LISINOPRIL HCTZ [Suspect]
     Active Substance: HYDROCHLOROTHIAZIDE\LISINOPRIL
     Dosage: 20 MG DAILY;25 MG
     Route: 048
     Dates: start: 20101129
  12. METFORMIN [Concomitant]
     Active Substance: METFORMIN HYDROCHLORIDE
     Route: 048
     Dates: start: 20101129, end: 20151102
  13. METFORMIN [Concomitant]
     Active Substance: METFORMIN HYDROCHLORIDE
     Dates: start: 20150805
  14. SYNTHROID [Concomitant]
     Active Substance: LEVOTHYROXINE SODIUM
     Route: 048
     Dates: start: 20101129
  15. TOPAMAX [Concomitant]
     Active Substance: TOPIRAMATE
     Route: 048
     Dates: start: 20101129, end: 20130207
  16. DOXYCYCLINE HYCLATE. [Concomitant]
     Active Substance: DOXYCYCLINE HYCLATE
     Route: 048
     Dates: start: 20140814, end: 20140824
  17. DOXYCYCLINE HYCLATE. [Concomitant]
     Active Substance: DOXYCYCLINE HYCLATE
     Route: 048
     Dates: start: 20150407, end: 20150417
  18. TESSALON [Concomitant]
     Active Substance: BENZONATATE
     Route: 048
     Dates: start: 20150407
  19. ALLOPURINOL. [Concomitant]
     Active Substance: ALLOPURINOL
     Route: 048
     Dates: start: 20151102
  20. FLU SHOT [Concomitant]
     Active Substance: INFLUENZA VIRUS VACCINE
  21. JANUMET [Concomitant]
     Active Substance: METFORMIN HYDROCHLORIDE\SITAGLIPTIN PHOSPHATE
     Dosage: 50-500 MG; TWO TIMES A DAY
     Route: 048
     Dates: start: 20101129
  22. CLOTRIMAZOLE AND BETAMETHASONE DIPROPIONATE [Concomitant]
     Active Substance: BETAMETHASONE\BETAMETHASONE DIPROPIONATE\CLOTRIMAZOLE
     Dosage: 1-0.05 % CREA
     Dates: start: 20130911
  23. TRADJENTA [Concomitant]
     Active Substance: LINAGLIPTIN
     Route: 048
     Dates: start: 20150928
  24. INSULIN [Concomitant]
     Active Substance: INSULIN NOS
  25. CLARITIN [Concomitant]
     Active Substance: LORATADINE
  26. TOPIRAMATE. [Concomitant]
     Active Substance: TOPIRAMATE
     Route: 048
     Dates: start: 20130911
  27. CEPHALEXIN. [Concomitant]
     Active Substance: CEPHALEXIN
     Route: 048
     Dates: start: 20150617, end: 20150627
  28. GLIMEPIRIDE. [Concomitant]
     Active Substance: GLIMEPIRIDE
     Route: 048
     Dates: start: 20120910
  29. FLUCONAZOLE. [Concomitant]
     Active Substance: FLUCONAZOLE
     Route: 048
     Dates: start: 20150617, end: 20150627
  30. TRAMADOL HYDROCHLORIDE. [Concomitant]
     Active Substance: TRAMADOL HYDROCHLORIDE
     Route: 048
     Dates: start: 20151109

REACTIONS (11)
  - Chronic kidney disease [Unknown]
  - Weight decreased [Unknown]
  - Rhinitis allergic [Unknown]
  - Diabetes mellitus [Unknown]
  - Obesity [Unknown]
  - Joint stiffness [Unknown]
  - Arthritis [Not Recovered/Not Resolved]
  - Pain in extremity [Unknown]
  - Gait disturbance [Unknown]
  - Acute kidney injury [Recovering/Resolving]
  - Adverse drug reaction [Unknown]

NARRATIVE: CASE EVENT DATE: 20150816
